FAERS Safety Report 17542432 (Version 1)
Quarter: 2020Q1

REPORT INFORMATION
  Report Type: Report from Study
  Country: US (occurrence: US)
  Receive Date: 20200314
  Receipt Date: 20200314
  Transmission Date: 20200409
  Serious: Yes (Death)
  Sender: FDA-Public Use
  Company Number: US-ACTELION-A-NJ2020-202856

PATIENT
  Sex: Female

DRUGS (14)
  1. POTASSIUM CHLORIDE. [Concomitant]
     Active Substance: POTASSIUM CHLORIDE
  2. FUROSEMIDE. [Concomitant]
     Active Substance: FUROSEMIDE
  3. WARFARIN [Concomitant]
     Active Substance: WARFARIN
  4. ALLOPURINOL. [Concomitant]
     Active Substance: ALLOPURINOL
  5. ATENOLOL. [Concomitant]
     Active Substance: ATENOLOL
  6. ADVAIR HFA [Concomitant]
     Active Substance: FLUTICASONE PROPIONATE\SALMETEROL XINAFOATE
  7. OPSUMIT [Suspect]
     Active Substance: MACITENTAN
     Indication: PULMONARY HYPERTENSION
     Dosage: 10 MG
     Route: 048
  8. BUMEX [Concomitant]
     Active Substance: BUMETANIDE
  9. PENICILLIN-VK [Concomitant]
     Active Substance: PENICILLIN V POTASSIUM
  10. PROAIR HFA [Concomitant]
     Active Substance: ALBUTEROL SULFATE
  11. DIGOXIN. [Concomitant]
     Active Substance: DIGOXIN
  12. LISINOPRIL. [Concomitant]
     Active Substance: LISINOPRIL
  13. ACETAMINOPHEN. [Concomitant]
     Active Substance: ACETAMINOPHEN
  14. LEVOFLOXACIN. [Concomitant]
     Active Substance: LEVOFLOXACIN

REACTIONS (1)
  - Death [Fatal]
